FAERS Safety Report 25676092 (Version 2)
Quarter: 2025Q3

REPORT INFORMATION
  Report Type: Report from Study
  Country: US (occurrence: US)
  Receive Date: 20250813
  Receipt Date: 20250912
  Transmission Date: 20251021
  Serious: No
  Sender: MALLINCKRODT
  Company Number: US-MALLINCKRODT-MNK202504972

PATIENT
  Sex: Male
  Weight: 184 kg

DRUGS (1)
  1. CORTICOTROPIN [Suspect]
     Active Substance: CORTICOTROPIN
     Indication: Proteinuria
     Dosage: 40 UNITS
     Route: 058

REACTIONS (2)
  - Insomnia [Unknown]
  - Blood glucose increased [Unknown]
